FAERS Safety Report 14099101 (Version 1)
Quarter: 2017Q4

REPORT INFORMATION
  Report Type: Spontaneous
  Country: IT (occurrence: IT)
  Receive Date: 20171017
  Receipt Date: 20171017
  Transmission Date: 20180321
  Serious: Yes (Hospitalization)
  Sender: FDA-Public Use
  Company Number: IT-PURDUE PHARMA-GBR-2017-0049763

PATIENT

DRUGS (20)
  1. SEQUACOR [Concomitant]
     Active Substance: BISOPROLOL
  2. EUTIROX [Concomitant]
     Active Substance: LEVOTHYROXINE SODIUM
  3. MONOKET [Concomitant]
     Active Substance: ISOSORBIDE MONONITRATE
  4. TAVOR (LORAZEPAM) [Concomitant]
     Active Substance: LORAZEPAM
  5. DUROGESIC [Suspect]
     Active Substance: FENTANYL
     Indication: PAIN
     Dosage: UNK
     Route: 062
     Dates: start: 20161001, end: 20161021
  6. ZETIA [Concomitant]
     Active Substance: EZETIMIBE
  7. ACETYLSALICYLIC ACID [Concomitant]
     Active Substance: ASPIRIN
  8. KANRENOL [Concomitant]
     Active Substance: CANRENOATE POTASSIUM
  9. CRESTOR [Concomitant]
     Active Substance: ROSUVASTATIN CALCIUM
  10. CREON [Concomitant]
     Active Substance: PANCRELIPASE AMYLASE\PANCRELIPASE LIPASE\PANCRELIPASE PROTEASE
  11. IVABRADINE [Concomitant]
     Active Substance: IVABRADINE
  12. COUMADIN [Concomitant]
     Active Substance: WARFARIN SODIUM
  13. LORTAAN [Concomitant]
     Active Substance: LOSARTAN POTASSIUM
  14. URSILON [Concomitant]
  15. ZOLOFT [Concomitant]
     Active Substance: SERTRALINE HYDROCHLORIDE
  16. LYRICA [Concomitant]
     Active Substance: PREGABALIN
  17. LASIX [Concomitant]
     Active Substance: FUROSEMIDE
  18. DELTACORTENE [Concomitant]
     Active Substance: PREDNISONE
  19. TARGIN [Suspect]
     Active Substance: NALOXONE HYDROCHLORIDE\OXYCODONE HYDROCHLORIDE
     Indication: PAIN
     Dosage: UNK
     Route: 048
     Dates: start: 20161021, end: 20161023
  20. SERETIDE [Concomitant]
     Active Substance: FLUTICASONE PROPIONATE\SALMETEROL XINAFOATE

REACTIONS (4)
  - Abdominal pain [Not Recovered/Not Resolved]
  - Anal stenosis [Not Recovered/Not Resolved]
  - Psychomotor hyperactivity [Not Recovered/Not Resolved]
  - Dysphagia [Not Recovered/Not Resolved]

NARRATIVE: CASE EVENT DATE: 20161022
